FAERS Safety Report 5318634-9 (Version None)
Quarter: 2007Q2

REPORT INFORMATION
  Report Type: 
  Country: None (occurrence: None)
  Receive Date: 20070508
  Receipt Date: 20070427
  Transmission Date: 20071010
  Serious: Yes (Hospitalization, Other)
  Sender: FDA-Public Use
  Company Number: PHEH2007US06517

PATIENT
  Age: 73 Year
  Sex: Female

DRUGS (1)
  1. ZELNORM [Suspect]

REACTIONS (7)
  - BLOOD PRESSURE DECREASED [None]
  - DIABETES MELLITUS [None]
  - HAEMATEMESIS [None]
  - HAEMORRHAGE [None]
  - INTESTINAL FUNCTIONAL DISORDER [None]
  - LOSS OF CONSCIOUSNESS [None]
  - RECTAL HAEMORRHAGE [None]
